FAERS Safety Report 7137389-9 (Version None)
Quarter: 2010Q4

REPORT INFORMATION
  Report Type: 
  Country: None (occurrence: None)
  Receive Date: 20101206
  Receipt Date: 20080506
  Transmission Date: 20110411
  Serious: Yes (Death)
  Sender: FDA-Public Use
  Company Number: US-ACTELION-A-US2008-20544

PATIENT

DRUGS (2)
  1. ILOPROST INHALATION SOLUTION 5UG US [Suspect]
     Indication: PULMONARY ARTERIAL HYPERTENSION
     Route: 055
     Dates: start: 20080327, end: 20080327
  2. TRACLEER [Concomitant]
     Indication: PULMONARY HYPERTENSION
     Dates: start: 20060807, end: 20080415

REACTIONS (1)
  - DEATH [None]
